FAERS Safety Report 9190912 (Version 1)
Quarter: 2013Q1

REPORT INFORMATION
  Report Type: Spontaneous
  Country: FR (occurrence: FR)
  Receive Date: 20130326
  Receipt Date: 20130326
  Transmission Date: 20140127
  Serious: Yes (Hospitalization)
  Sender: FDA-Public Use
  Company Number: FR-GLAXOSMITHKLINE-B0875676A

PATIENT
  Age: 72 Year
  Sex: Female

DRUGS (2)
  1. ARIXTRA [Suspect]
     Indication: PHLEBITIS
     Dosage: 7.5MG PER DAY
     Route: 058
     Dates: start: 201211, end: 20121228
  2. HEPARIN [Concomitant]
     Indication: PHLEBITIS
     Dates: start: 201211, end: 201211

REACTIONS (6)
  - Subdural haematoma [Recovering/Resolving]
  - Headache [Unknown]
  - Somnolence [Unknown]
  - Mydriasis [Unknown]
  - Thrombocytopenia [Unknown]
  - Mutism [Unknown]
